FAERS Safety Report 9617734 (Version 1)
Quarter: 2013Q4

REPORT INFORMATION
  Report Type: Spontaneous
  Country: TW (occurrence: None)
  Receive Date: 20131009
  Receipt Date: 20131009
  Transmission Date: 20140711
  Serious: Yes (Hospitalization)
  Sender: FDA-Public Use
  Company Number: IPC201309-000381

PATIENT
  Age: 67 Year
  Sex: Female

DRUGS (4)
  1. WARFARIN (WARFARIN) (WARFARIN) [Suspect]
  2. FUROSEMIDE [Suspect]
  3. PANTOPRAZOLE (PANTOPRAZOLE) (PANTOPRAZOLE) [Suspect]
     Indication: PNEUMONIA
  4. MOXIFLOXACIN (MOXIFLOXACIN HCL) (MOXIFLOXACIN HCL) [Suspect]
     Indication: PNEUMONIA

REACTIONS (6)
  - Abdominal wall haematoma [None]
  - Peritoneal haemorrhage [None]
  - International normalised ratio increased [None]
  - Drug interaction [None]
  - Ecchymosis [None]
  - Prothrombin time prolonged [None]
